FAERS Safety Report 23127001 (Version 1)
Quarter: 2023Q4

REPORT INFORMATION
  Report Type: Report from Study
  Country: CA (occurrence: CA)
  Receive Date: 20231030
  Receipt Date: 20231030
  Transmission Date: 20240110
  Serious: Yes (Other)
  Sender: FDA-Public Use
  Company Number: CA-002147023-NVSC2022CA257092

PATIENT
  Sex: Female

DRUGS (1)
  1. ERELZI [Suspect]
     Active Substance: ETANERCEPT-SZZS
     Indication: Psoriatic arthropathy
     Dosage: 50 MG, (25 MG TWICE WEEKLY)
     Route: 058
     Dates: start: 20220307

REACTIONS (8)
  - Cervical spinal stenosis [Unknown]
  - Spinal osteoarthritis [Unknown]
  - Pain in extremity [Unknown]
  - Groin pain [Unknown]
  - Movement disorder [Unknown]
  - Gait disturbance [Unknown]
  - Pain [Unknown]
  - General physical health deterioration [Unknown]
